FAERS Safety Report 9699016 (Version 2)
Quarter: 2014Q1

REPORT INFORMATION
  Report Type: Spontaneous
  Country: US (occurrence: US)
  Receive Date: 20131120
  Receipt Date: 20140114
  Transmission Date: 20141002
  Serious: Yes (Other)
  Sender: FDA-Public Use
  Company Number: US-ELI_LILLY_AND_COMPANY-US201311004024

PATIENT
  Age: 73 Year
  Sex: Female
  Weight: 68.03 kg

DRUGS (1)
  1. HUMULIN NPH [Suspect]
     Indication: TYPE 2 DIABETES MELLITUS
     Dosage: UNK, UNKNOWN
     Route: 058
     Dates: start: 2011, end: 20131210

REACTIONS (7)
  - Gastric haemorrhage [Unknown]
  - Gastritis [Unknown]
  - Melaena [Unknown]
  - Muscle spasms [Unknown]
  - Eustachian tube obstruction [Unknown]
  - Blood glucose increased [Unknown]
  - Drug hypersensitivity [Unknown]
